FAERS Safety Report 9711132 (Version 1)
Quarter: 2013Q4

REPORT INFORMATION
  Report Type: Spontaneous
  Country: US (occurrence: US)
  Receive Date: 20131126
  Receipt Date: 20131126
  Transmission Date: 20140711
  Serious: No
  Sender: FDA-Public Use
  Company Number: US-BRISTOL-MYERS SQUIBB COMPANY-19155712

PATIENT
  Age: 74 Year
  Sex: Female
  Weight: 82.08 kg

DRUGS (6)
  1. BYETTA [Suspect]
     Indication: TYPE 2 DIABETES MELLITUS
     Route: 058
     Dates: start: 20130717
  2. METFORMIN [Concomitant]
  3. ATORVASTATIN [Concomitant]
  4. PIOGLITAZONE HCL [Concomitant]
  5. LOSARTAN [Concomitant]
  6. CIPROFLOXACIN [Concomitant]
     Dosage: 1DF=500 UNITS NOS

REACTIONS (1)
  - Nausea [Not Recovered/Not Resolved]
